FAERS Safety Report 24160671 (Version 1)
Quarter: 2024Q3

REPORT INFORMATION
  Report Type: Spontaneous
  Country: CN (occurrence: CN)
  Receive Date: 20240801
  Receipt Date: 20240801
  Transmission Date: 20241016
  Serious: No
  Sender: ALKEM
  Company Number: CN-ALKEM LABORATORIES LIMITED-CN-ALKEM-2024-07489

PATIENT
  Age: 50 Year
  Sex: Female

DRUGS (4)
  1. ITRACONAZOLE [Suspect]
     Active Substance: ITRACONAZOLE
     Indication: Chromoblastomycosis
     Dosage: 200 MG/DAY, TID (MORE THAN 5 YEARS )
     Route: 048
  2. ITRACONAZOLE [Suspect]
     Active Substance: ITRACONAZOLE
     Dosage: 400 MILLIGRAM
     Route: 065
  3. ITRACONAZOLE [Suspect]
     Active Substance: ITRACONAZOLE
     Dosage: 250 MG/DAY, TID
     Route: 048
     Dates: start: 20130702, end: 20130730
  4. TERBINAFINE [Suspect]
     Active Substance: TERBINAFINE
     Indication: Chromoblastomycosis
     Dosage: 250 MG/DAY, TID
     Route: 048
     Dates: start: 20130702, end: 20130730

REACTIONS (1)
  - Therapy partial responder [Unknown]
